FAERS Safety Report 19055763 (Version 3)
Quarter: 2021Q2

REPORT INFORMATION
  Report Type: Report from Study
  Country: AU (occurrence: AU)
  Receive Date: 20210325
  Receipt Date: 20210618
  Transmission Date: 20210717
  Serious: Yes (Other)
  Sender: FDA-Public Use
  Company Number: NVSC2021AU034240

PATIENT
  Age: 74 Year
  Sex: Female

DRUGS (1)
  1. MAYZENT [Suspect]
     Active Substance: SIPONIMOD
     Indication: SECONDARY PROGRESSIVE MULTIPLE SCLEROSIS
     Dosage: 2 MG, QD
     Route: 048
     Dates: start: 20201010, end: 20210506

REACTIONS (14)
  - Headache [Unknown]
  - Dizziness [Unknown]
  - Arthralgia [Unknown]
  - Cataract [Unknown]
  - Diarrhoea [Unknown]
  - Eye disorder [Unknown]
  - Fall [Unknown]
  - Gait disturbance [Unknown]
  - Visual impairment [Unknown]
  - Nausea [Unknown]
  - Ocular discomfort [Unknown]
  - Anxiety [Unknown]
  - Peroneal nerve palsy [Unknown]
  - Pain in extremity [Unknown]

NARRATIVE: CASE EVENT DATE: 20201015
